FAERS Safety Report 4804370-1 (Version None)
Quarter: 2005Q4

REPORT INFORMATION
  Report Type: 
  Country: None (occurrence: None)
  Receive Date: 20051017
  Receipt Date: 20051004
  Transmission Date: 20060501
  Serious: Yes (Other)
  Sender: FDA-Public Use
  Company Number: 2005137671

PATIENT
  Sex: Female
  Weight: 102.0593 kg

DRUGS (4)
  1. CELEBREX [Suspect]
     Indication: ARTHRITIS
     Dosage: 200 MG (200 MG 1 IN 1 D),
  2. BEXTRA [Suspect]
     Indication: ARTHRITIS
     Dosage: 10 MG (10 MG, 1 IN 1 D),
  3. CALTRATE (CALCIUM CARBONATE) [Concomitant]
  4. FLAXSEED OIL (FLAXSEED OIL) [Concomitant]

REACTIONS (3)
  - ARTHROPATHY [None]
  - DIABETES MELLITUS [None]
  - THERAPEUTIC RESPONSE DECREASED [None]
